FAERS Safety Report 6623893-6 (Version None)
Quarter: 2010Q1

REPORT INFORMATION
  Report Type: 
  Country: None (occurrence: None)
  Receive Date: 20100310
  Receipt Date: 20100304
  Transmission Date: 20100710
  Serious: Yes (Hospitalization, Other)
  Sender: FDA-Public Use
  Company Number: PHHY2010NP13696

PATIENT
  Age: 24 Year
  Sex: Female

DRUGS (1)
  1. OXYTOCIN [Suspect]
     Dosage: 15 U IN REMAINING 350 ML RL

REACTIONS (7)
  - APNOEA [None]
  - DISCOMFORT [None]
  - DYSPNOEA [None]
  - HEART RATE DECREASED [None]
  - LOSS OF CONSCIOUSNESS [None]
  - OXYGEN SATURATION DECREASED [None]
  - UNRESPONSIVE TO STIMULI [None]
